FAERS Safety Report 7910755-7 (Version None)
Quarter: 2011Q4

REPORT INFORMATION
  Report Type: 
  Country: None (occurrence: None)
  Receive Date: 20111112
  Receipt Date: 20111102
  Transmission Date: 20120403
  Serious: Yes (Other)
  Sender: FDA-Public Use
  Company Number: US-ASTRAZENECA-2011SE67324

PATIENT
  Age: 54 Year
  Sex: Male

DRUGS (2)
  1. NEXIUM [Suspect]
     Dosage: DOUBLE THE PREVIOUS DOSE
     Route: 048
  2. NEXIUM [Suspect]
     Route: 048

REACTIONS (3)
  - INTESTINAL PERFORATION [None]
  - PANCREATIC CARCINOMA [None]
  - HEPATIC NEOPLASM [None]
